FAERS Safety Report 13745461 (Version 1)
Quarter: 2017Q3

REPORT INFORMATION
  Report Type: Spontaneous
  Country: US (occurrence: US)
  Receive Date: 20170711
  Receipt Date: 20170711
  Transmission Date: 20171127
  Serious: No
  Sender: FDA-Public Use
  Company Number: None

PATIENT
  Age: 56 Year
  Sex: Female

DRUGS (1)
  1. SUPARTZ FX 25MG/2.5ML FIDIA [Suspect]
     Active Substance: HYALURONATE SODIUM
     Indication: OSTEOARTHRITIS
     Dosage: 25 MG QW X 3 WEEKS IA
     Route: 014
     Dates: start: 201706

REACTIONS (2)
  - Syncope [None]
  - Pain [None]

NARRATIVE: CASE EVENT DATE: 201706
